FAERS Safety Report 4982135-8 (Version None)
Quarter: 2006Q2

REPORT INFORMATION
  Report Type: 
  Country: None (occurrence: None)
  Receive Date: 20060425
  Receipt Date: 20051110
  Transmission Date: 20061013
  Serious: Yes (Hospitalization, Other)
  Sender: FDA-Public Use
  Company Number: US-MERCK-0511USA01898

PATIENT
  Age: 68 Year
  Sex: Female
  Weight: 61 kg

DRUGS (4)
  1. VIOXX [Suspect]
     Indication: ARTHRALGIA
     Route: 048
     Dates: start: 20021226, end: 20031201
  2. VIOXX [Suspect]
     Route: 048
     Dates: start: 20021226, end: 20031201
  3. VIOXX [Suspect]
     Indication: ARTHRITIS
     Route: 048
     Dates: start: 20021226, end: 20031201
  4. VIOXX [Suspect]
     Route: 048
     Dates: start: 20021226, end: 20031201

REACTIONS (15)
  - ANGIOPATHY [None]
  - BLOOD PRESSURE INADEQUATELY CONTROLLED [None]
  - CARDIAC DISORDER [None]
  - CARDIAC FAILURE CONGESTIVE [None]
  - CEREBELLAR HAEMORRHAGE [None]
  - FEMORAL NECK FRACTURE [None]
  - HYDROCEPHALUS [None]
  - INJURY [None]
  - MYOCARDIAL INFARCTION [None]
  - NEUROGENIC BLADDER [None]
  - PNEUMONIA [None]
  - PULMONARY OEDEMA [None]
  - RENAL FAILURE [None]
  - URINARY TRACT INFECTION [None]
  - WEIGHT INCREASED [None]
